FAERS Safety Report 4837543-2 (Version None)
Quarter: 2005Q4

REPORT INFORMATION
  Report Type: 
  Country: None (occurrence: None)
  Receive Date: 20051128
  Receipt Date: 20051117
  Transmission Date: 20060501
  Serious: Yes (Hospitalization)
  Sender: FDA-Public Use
  Company Number: PHBS2005IT17146

PATIENT
  Age: 88 Year
  Sex: Male
  Weight: 65 kg

DRUGS (4)
  1. INDOXEN [Concomitant]
     Dosage: 100 MG/DAY
     Route: 048
     Dates: start: 20050520, end: 20050607
  2. DELTACORTENE [Concomitant]
     Dosage: 5 MG/D
     Route: 048
     Dates: start: 20050426
  3. ENAPREN [Concomitant]
     Dosage: 5 MG/D
     Route: 048
  4. EXELON [Suspect]
     Indication: DEMENTIA ALZHEIMER'S TYPE
     Dosage: 6 MG/D
     Route: 048
     Dates: start: 20040113

REACTIONS (1)
  - PERICARDITIS [None]
